FAERS Safety Report 4388472-2 (Version None)
Quarter: 2004Q2

REPORT INFORMATION
  Report Type: 
  Country: None (occurrence: None)
  Receive Date: 20040625
  Receipt Date: 20040616
  Transmission Date: 20050107
  Serious: Yes (Other)
  Sender: FDA-Public Use
  Company Number: US-JNJFOC-20040403820

PATIENT
  Age: 48 Year
  Sex: Female

DRUGS (5)
  1. DURAGESIC [Suspect]
     Indication: PAIN
     Dosage: 75 UG/HR, 1 IN 72 HOUR, TRANSDERMAL
     Route: 062
     Dates: start: 20040406
  2. PAXIL [Concomitant]
  3. AMITRIPTYLINE HCL [Concomitant]
  4. QUININE SULFATE (QUININE SULFATE) [Concomitant]
  5. SYNTHYROID (LEVOTHYROXINE SODIUM) [Concomitant]

REACTIONS (5)
  - DYSPNOEA [None]
  - FEELING ABNORMAL [None]
  - LOSS OF CONSCIOUSNESS [None]
  - MOVEMENT DISORDER [None]
  - PAIN [None]
